FAERS Safety Report 7599633-3 (Version None)
Quarter: 2011Q2

REPORT INFORMATION
  Report Type: 
  Country: None (occurrence: None)
  Receive Date: 20110623
  Receipt Date: 20110615
  Transmission Date: 20111010
  Serious: Yes (Hospitalization)
  Sender: FDA-Public Use
  Company Number: 2011028943

PATIENT
  Age: 61 Year
  Sex: Female
  Weight: 87.5442 kg

DRUGS (28)
  1. PREDNISONE [Concomitant]
  2. VITAMIN D [Concomitant]
  3. LYRICA [Concomitant]
  4. NEXIUM [Concomitant]
  5. VITAMIN B12 [Concomitant]
  6. AZITHROMYCIN [Concomitant]
  7. PROBIOTIC (LACTOBACILLUS ACIDOPHILUS) [Concomitant]
  8. LOTENSIN [Concomitant]
  9. TESSALON [Concomitant]
  10. ZEMAIRA [Suspect]
     Indication: ALPHA-1 ANTI-TRYPSIN DEFICIENCY
     Dosage: SEE IMAGE
     Route: 042
     Dates: start: 20070928
  11. ZEMAIRA [Suspect]
     Indication: ALPHA-1 ANTI-TRYPSIN DEFICIENCY
     Dosage: SEE IMAGE
     Route: 042
     Dates: start: 20110601
  12. ALBUTEROL [Concomitant]
  13. PAXIL [Concomitant]
  14. OXYGEN (OXYGEN) [Concomitant]
  15. DILTIAZEM [Concomitant]
  16. ACETAMINOPHEN [Concomitant]
  17. SYMBICORT [Concomitant]
  18. COMBIVENT [Concomitant]
  19. ULTRAM [Concomitant]
  20. BACTRIM [Concomitant]
  21. LASIX [Concomitant]
  22. ATIVAN [Concomitant]
  23. ALDACTONE (POTASSIUM CANRENOATE) [Concomitant]
  24. COLACE (DOCUSATE SODIUM) [Concomitant]
  25. SPIRIVA [Concomitant]
  26. PULMICORT [Concomitant]
  27. ACETYLCYSTEINE [Concomitant]
  28. NITROGLYCERIN [Concomitant]

REACTIONS (3)
  - CYST [None]
  - PNEUMONIA [None]
  - PATHOLOGICAL FRACTURE [None]
